FAERS Safety Report 17103212 (Version 1)
Quarter: 2019Q4

REPORT INFORMATION
  Report Type: Spontaneous
  Country: US (occurrence: US)
  Receive Date: 20191107
  Receipt Date: 20191107
  Transmission Date: 20200122
  Serious: Yes (Hospitalization)
  Sender: FDA-Public Use
  Company Number: None

PATIENT
  Age: 76 Year
  Sex: Male
  Weight: 122 kg

DRUGS (3)
  1. GEMCITABINE HYDROCHLORIDE. [Suspect]
     Active Substance: GEMCITABINE HYDROCHLORIDE
     Dates: end: 20191022
  2. PACLITAXEL PROTEIN-BOUND PARTICVLES (ALBUMIN-BOUND) [Suspect]
     Active Substance: PACLITAXEL
     Dates: end: 20191022
  3. CISPLATIN. [Suspect]
     Active Substance: CISPLATIN
     Dates: end: 20191022

REACTIONS (14)
  - Back pain [None]
  - Myocardial infarction [None]
  - Bacterial test positive [None]
  - Multiple organ dysfunction syndrome [None]
  - Heart rate increased [None]
  - General physical health deterioration [None]
  - Liver abscess [None]
  - Blood pressure decreased [None]
  - Abdominal pain [None]
  - Septic shock [None]
  - Pneumonia [None]
  - Atrial fibrillation [None]
  - Fatigue [None]
  - Bacterial infection [None]

NARRATIVE: CASE EVENT DATE: 20191028
